FAERS Safety Report 10624727 (Version 2)
Quarter: 2014Q4

REPORT INFORMATION
  Report Type: Spontaneous
  Country: US (occurrence: US)
  Receive Date: 20141204
  Receipt Date: 20141231
  Transmission Date: 20150529
  Serious: No
  Sender: FDA-Public Use
  Company Number: US-009507513-1411USA012893

PATIENT
  Sex: Female

DRUGS (1)
  1. ASMANEX [Suspect]
     Active Substance: MOMETASONE FUROATE
     Indication: DYSPNOEA
     Dosage: 110 MICROGRAM, UNK
     Route: 055

REACTIONS (4)
  - Product quality issue [Recovered/Resolved]
  - Drug administration error [Recovered/Resolved]
  - No adverse event [Unknown]
  - Drug dose omission [Recovered/Resolved]
